FAERS Safety Report 25386250 (Version 2)
Quarter: 2025Q2

REPORT INFORMATION
  Report Type: Spontaneous
  Country: KR (occurrence: KR)
  Receive Date: 20250602
  Receipt Date: 20250616
  Transmission Date: 20250716
  Serious: No
  Sender: ALEXION PHARMACEUTICALS
  Company Number: KR-AstraZeneca-2023A155604

PATIENT

DRUGS (1)
  1. SYMBICORT [Suspect]
     Active Substance: BUDESONIDE\FORMOTEROL FUMARATE DIHYDRATE

REACTIONS (5)
  - Nasal congestion [Unknown]
  - Vomiting [Unknown]
  - Nausea [Unknown]
  - Product container seal issue [Unknown]
  - Device delivery system issue [Unknown]
